FAERS Safety Report 15496987 (Version 3)
Quarter: 2018Q4

REPORT INFORMATION
  Report Type: Report from Study
  Country: None (occurrence: CA)
  Receive Date: 20181015
  Receipt Date: 20181113
  Transmission Date: 20190205
  Serious: Yes (Hospitalization, Other)
  Sender: FDA-Public Use
  Company Number: CA-ABBVIE-18K-028-2515954-00

PATIENT
  Sex: Female

DRUGS (1)
  1. HUMIRA [Suspect]
     Active Substance: ADALIMUMAB
     Indication: CROHN^S DISEASE
     Route: 058
     Dates: start: 20180823, end: 20180919

REACTIONS (6)
  - Salpingitis [Unknown]
  - Procedural pain [Not Recovered/Not Resolved]
  - Procedural intestinal perforation [Unknown]
  - Therapeutic response shortened [Not Recovered/Not Resolved]
  - Oophoritis [Unknown]
  - Diarrhoea [Recovering/Resolving]

NARRATIVE: CASE EVENT DATE: 2018
